FAERS Safety Report 6830620-6 (Version None)
Quarter: 2010Q3

REPORT INFORMATION
  Report Type: 
  Country: None (occurrence: None)
  Receive Date: 20100709
  Receipt Date: 20100709
  Transmission Date: 20110219
  Serious: No
  Sender: FDA-Public Use
  Company Number: None

PATIENT
  Sex: Female
  Weight: 53.0709 kg

DRUGS (9)
  1. RECLAST [Suspect]
     Indication: ADENOMA BENIGN
     Dosage: IV -3.0 INJECTION 1 X ANNAL
     Route: 042
     Dates: start: 20100224
  2. RECLAST [Suspect]
     Indication: OSTEOPOROSIS
     Dosage: IV -3.0 INJECTION 1 X ANNAL
     Route: 042
     Dates: start: 20100224
  3. RECLAST [Suspect]
     Indication: PARATHYROIDECTOMY
     Dosage: IV -3.0 INJECTION 1 X ANNAL
     Route: 042
     Dates: start: 20100224
  4. CALCIUM [Concomitant]
  5. MAGNES [Concomitant]
  6. GLUCOSAMINE CHONDROITIN [Concomitant]
  7. LISINOPRIL [Concomitant]
  8. NIFEDIPINE [Concomitant]
  9. LEVOXYL [Concomitant]

REACTIONS (4)
  - ARTHRALGIA [None]
  - BACK PAIN [None]
  - FLANK PAIN [None]
  - INFLUENZA [None]
